FAERS Safety Report 7266080-3 (Version None)
Quarter: 2011Q1

REPORT INFORMATION
  Report Type: 
  Country: None (occurrence: None)
  Receive Date: 20110131
  Receipt Date: 20100211
  Transmission Date: 20110831
  Serious: No
  Sender: FDA-Public Use
  Company Number: US-ABBOTT-10P-163-0626602-00

PATIENT
  Sex: Male
  Weight: 96.248 kg

DRUGS (16)
  1. LUPRON DEPOT [Suspect]
     Indication: PROSTATE CANCER
     Dates: start: 20031101
  2. OXYCONTIN [Concomitant]
     Indication: PAIN
  3. AMBIEN [Concomitant]
     Indication: SLEEP DISORDER
  4. METOPROLOL TARTRATE [Concomitant]
     Indication: PRODUCT USED FOR UNKNOWN INDICATION
  5. OXYCODONE HCL [Concomitant]
     Indication: PAIN
  6. NITROGLYCERIN [Concomitant]
     Indication: PRODUCT USED FOR UNKNOWN INDICATION
  7. ASPIRIN [Concomitant]
     Indication: PRODUCT USED FOR UNKNOWN INDICATION
  8. GLIMEPIRIDE [Concomitant]
     Indication: DIABETES MELLITUS
  9. LIDOCAINE [Concomitant]
     Indication: PAIN
  10. PAROXETINE HCL [Concomitant]
     Indication: DEPRESSION
     Dates: start: 20100215
  11. WARFARIN SODIUM [Concomitant]
     Indication: PRODUCT USED FOR UNKNOWN INDICATION
  12. IRON [Concomitant]
     Indication: MINERAL SUPPLEMENTATION
  13. SIMVASTATIN [Concomitant]
     Indication: BLOOD CHOLESTEROL INCREASED
  14. TRANDOLAPRIL [Concomitant]
     Indication: PRODUCT USED FOR UNKNOWN INDICATION
  15. ACTONEL [Concomitant]
     Indication: OSTEOPOROSIS
  16. ZANTAC [Concomitant]
     Indication: PRODUCT USED FOR UNKNOWN INDICATION

REACTIONS (6)
  - INJECTION SITE PRURITUS [None]
  - INJECTION SITE NODULE [None]
  - INJECTION SITE HAEMORRHAGE [None]
  - INJECTION SITE PAIN [None]
  - INJECTION SITE DISCOLOURATION [None]
  - INJECTION SITE PUSTULE [None]
